FAERS Safety Report 6212948-6 (Version None)
Quarter: 2009Q2

REPORT INFORMATION
  Report Type: 
  Country: None (occurrence: None)
  Receive Date: 20090603
  Receipt Date: 20090527
  Transmission Date: 20091009
  Serious: Yes (Other)
  Sender: FDA-Public Use
  Company Number: JP-B.I. PHARMACEUTICALS,INC./RIDGEFIELD-2009-DE-03625GD

PATIENT
  Sex: Female
  Weight: 2.64 kg

DRUGS (1)
  1. DIPYRIDAMOLE [Suspect]
     Indication: DRUG EXPOSURE DURING PREGNANCY
     Route: 064

REACTIONS (2)
  - FOETAL GROWTH RETARDATION [None]
  - SMALL FOR DATES BABY [None]
